FAERS Safety Report 24773399 (Version 1)
Quarter: 2024Q4

REPORT INFORMATION
  Report Type: Report from Study
  Country: US (occurrence: US)
  Receive Date: 20241225
  Receipt Date: 20241225
  Transmission Date: 20250115
  Serious: Yes (Hospitalization)
  Sender: ABBVIE
  Company Number: US-ABBVIE-6060388

PATIENT
  Age: 48 Year
  Sex: Male

DRUGS (6)
  1. SKYRIZI [Suspect]
     Active Substance: RISANKIZUMAB-RZAA
     Indication: Crohn^s disease
     Dosage: 360 MG?WEEK 12
     Route: 058
     Dates: start: 20240225, end: 20240225
  2. SKYRIZI [Suspect]
     Active Substance: RISANKIZUMAB-RZAA
     Dosage: 360 MG
     Route: 058
     Dates: start: 202404, end: 202410
  3. SKYRIZI [Suspect]
     Active Substance: RISANKIZUMAB-RZAA
     Indication: Crohn^s disease
     Dosage: 600 MG?WEEK 0
     Route: 042
     Dates: start: 202311, end: 202311
  4. SKYRIZI [Suspect]
     Active Substance: RISANKIZUMAB-RZAA
     Indication: Crohn^s disease
     Dosage: 600 MG?WEEK 4
     Route: 042
     Dates: start: 202312, end: 202312
  5. SKYRIZI [Suspect]
     Active Substance: RISANKIZUMAB-RZAA
     Indication: Crohn^s disease
     Dosage: 600 MG?WEEK 8
     Route: 042
     Dates: start: 20240126, end: 20240126
  6. RINVOQ [Concomitant]
     Active Substance: UPADACITINIB
     Indication: Product used for unknown indication
     Dosage: ER

REACTIONS (4)
  - Decreased appetite [Unknown]
  - Crohn^s disease [Unknown]
  - Dyspepsia [Unknown]
  - Stenosis [Unknown]

NARRATIVE: CASE EVENT DATE: 20240101
